FAERS Safety Report 25093076 (Version 1)
Quarter: 2025Q1

REPORT INFORMATION
  Report Type: Other
  Country: FR (occurrence: FR)
  Receive Date: 20250319
  Receipt Date: 20250319
  Transmission Date: 20250409
  Serious: Yes (Hospitalization)
  Sender: ZYDUS PHARM
  Company Number: None

PATIENT

DRUGS (9)
  1. PREGABALIN [Suspect]
     Active Substance: PREGABALIN
     Indication: Product used for unknown indication
     Route: 048
     Dates: end: 20250129
  2. BROMAZEPAM [Suspect]
     Active Substance: BROMAZEPAM
     Indication: Product used for unknown indication
     Route: 048
     Dates: end: 20250128
  3. BROMAZEPAM [Suspect]
     Active Substance: BROMAZEPAM
     Route: 048
     Dates: start: 20250129, end: 20250129
  4. OXAZEPAM [Suspect]
     Active Substance: OXAZEPAM
     Indication: Product used for unknown indication
     Route: 048
     Dates: end: 20250128
  5. OXAZEPAM [Suspect]
     Active Substance: OXAZEPAM
     Route: 048
     Dates: start: 20250129, end: 20250129
  6. COCAINE [Suspect]
     Active Substance: COCAINE
     Indication: Product used for unknown indication
     Route: 045
     Dates: end: 202501
  7. COCAINE [Suspect]
     Active Substance: COCAINE
     Dates: end: 202501
  8. CANNABIS SATIVA SUBSP. INDICA TOP [Suspect]
     Active Substance: CANNABIS SATIVA SUBSP. INDICA TOP
     Indication: Product used for unknown indication
  9. METHADONE [Concomitant]
     Active Substance: METHADONE HYDROCHLORIDE
     Indication: Drug withdrawal syndrome
     Route: 048
     Dates: start: 2009

REACTIONS (6)
  - Respiratory failure [Recovered/Resolved]
  - Altered state of consciousness [Recovered/Resolved]
  - Coma [Recovered/Resolved]
  - Intentional product misuse [Recovered/Resolved]
  - Drug abuse [Recovered/Resolved]
  - Drug abuse [Recovered/Resolved]

NARRATIVE: CASE EVENT DATE: 20250101
